FAERS Safety Report 20711146 (Version 1)
Quarter: 2022Q2

REPORT INFORMATION
  Report Type: Spontaneous
  Country: US (occurrence: US)
  Receive Date: 20220414
  Receipt Date: 20220414
  Transmission Date: 20220720
  Serious: Yes (Hospitalization, Other)
  Sender: FDA-Public Use
  Company Number: US-ALVOGEN-2022-ALVOGEN-119585

PATIENT
  Age: 39 Year
  Sex: Male

DRUGS (1)
  1. VORICONAZOLE [Suspect]
     Active Substance: VORICONAZOLE
     Indication: Antifungal prophylaxis

REACTIONS (8)
  - Hallucination [Unknown]
  - Perirectal abscess [Unknown]
  - Neuropathy peripheral [Unknown]
  - Rash [Unknown]
  - Arthralgia [Unknown]
  - Drug-induced liver injury [Unknown]
  - Abdominal discomfort [Unknown]
  - Drug ineffective [Unknown]
